FAERS Safety Report 7091435-X (Version None)
Quarter: 2010Q4

REPORT INFORMATION
  Report Type: 
  Country: None (occurrence: None)
  Receive Date: 20101109
  Receipt Date: 20101101
  Transmission Date: 20110411
  Serious: Yes (Hospitalization, Other)
  Sender: FDA-Public Use
  Company Number: US-ABBOTT-10P-163-0682631-00

PATIENT
  Sex: Female
  Weight: 56.75 kg

DRUGS (4)
  1. HUMIRA [Suspect]
     Indication: CROHN'S DISEASE
     Dates: start: 20090101, end: 20090101
  2. HUMIRA [Suspect]
     Dates: start: 20100901
  3. PROPRANOLOL [Concomitant]
     Indication: HYPERTENSION
  4. PERCOCET [Concomitant]
     Indication: PAIN

REACTIONS (5)
  - CONVULSION [None]
  - CROHN'S DISEASE [None]
  - DRUG INEFFECTIVE [None]
  - GASTRIC HAEMORRHAGE [None]
  - MYALGIA [None]
